FAERS Safety Report 17693721 (Version 1)
Quarter: 2020Q2

REPORT INFORMATION
  Report Type: Spontaneous
  Country: BR (occurrence: BR)
  Receive Date: 20200422
  Receipt Date: 20200422
  Transmission Date: 20200714
  Serious: Yes (Other)
  Sender: FDA-Public Use
  Company Number: BR-PFIZER INC-2020158189

PATIENT
  Age: 82 Year
  Sex: Male

DRUGS (3)
  1. XALATAN [Suspect]
     Active Substance: LATANOPROST
     Indication: EYE DISORDER
     Dosage: UNK
  2. XALACOM [Suspect]
     Active Substance: LATANOPROST\TIMOLOL MALEATE
  3. XALATAN [Suspect]
     Active Substance: LATANOPROST
     Dosage: UNK
     Dates: start: 202003

REACTIONS (2)
  - Glaucoma [Unknown]
  - Hypoacusis [Unknown]
